FAERS Safety Report 4348709-2 (Version None)
Quarter: 2004Q2

REPORT INFORMATION
  Report Type: 
  Country: None (occurrence: None)
  Receive Date: 20040423
  Receipt Date: 20040412
  Transmission Date: 20050107
  Serious: Yes (Hospitalization)
  Sender: FDA-Public Use
  Company Number: TEST00204001006

PATIENT
  Age: 49 Year
  Sex: Male
  Weight: 90.7194 kg

DRUGS (1)
  1. ANDROGEL [Suspect]
     Indication: BLOOD TESTOSTERONE DECREASED
     Dosage: SEE IMAGE
     Route: 058
     Dates: start: 20040301, end: 20040301

REACTIONS (5)
  - INJECTION SITE REACTION [None]
  - MEDICATION ERROR [None]
  - OPEN WOUND [None]
  - SCROTAL OEDEMA [None]
  - SKIN REACTION [None]
